FAERS Safety Report 4332993-5 (Version None)
Quarter: 2004Q1

REPORT INFORMATION
  Report Type: 
  Country: None (occurrence: None)
  Receive Date: 20040330
  Receipt Date: 20040317
  Transmission Date: 20041129
  Serious: Yes (Other)
  Sender: FDA-Public Use
  Company Number: USA-2004-0013888

PATIENT
  Age: 60 Year
  Sex: Female

DRUGS (3)
  1. OXYCONTIN [Suspect]
     Indication: PAIN
     Dosage: MG, TID, ORAL
     Route: 048
     Dates: start: 20000101
  2. PERCOCET [Concomitant]
  3. ANTIDEPRESSANTS [Concomitant]

REACTIONS (3)
  - ANKLE FRACTURE [None]
  - DRUG DEPENDENCE [None]
  - FALL [None]
